FAERS Safety Report 5479762-0 (Version None)
Quarter: 2007Q4

REPORT INFORMATION
  Report Type: 
  Country: None (occurrence: None)
  Receive Date: 20071008
  Receipt Date: 20070921
  Transmission Date: 20080405
  Serious: Yes (Death)
  Sender: FDA-Public Use
  Company Number: DE-SHR-DE-2007-037424

PATIENT
  Age: 49 Year
  Sex: Male
  Weight: 80 kg

DRUGS (14)
  1. CAMPATH [Suspect]
     Indication: ACUTE GRAFT VERSUS HOST DISEASE
     Dates: start: 20070101
  2. THYMOGLOBULINE                          /FRA/ [Suspect]
     Dosage: 80MG 8 DAYS, 75 MG 4 DAYS
     Dates: start: 20070531, end: 20070612
  3. CANCIDAS [Concomitant]
     Dosage: 50 MG, UNK
     Dates: start: 20070531, end: 20070613
  4. ROCEPHIN [Concomitant]
     Dosage: 2 G, PER DAY
     Dates: start: 20070531, end: 20070613
  5. COTRIM [Concomitant]
     Dosage: 960 MG/D, UNK
     Dates: start: 20070531, end: 20070610
  6. ACYCLOVIR [Concomitant]
     Dosage: 960 MG/D, UNK
     Dates: start: 20070531, end: 20070614
  7. IMMUNE GLOBULIN INTRAVENOUS (HUMAN) [Concomitant]
     Dates: start: 20070608, end: 20070613
  8. RITUXIMAB [Suspect]
     Dates: start: 20070101
  9. SIMULECT [Suspect]
     Dates: start: 20070101
  10. INFLIXIMAB [Suspect]
     Dates: start: 20070101
  11. NEUPOGEN [Concomitant]
     Dates: start: 20070101
  12. EPOGEN [Concomitant]
     Dates: start: 20070101
  13. PLATELETS [Concomitant]
     Dates: start: 20070101
  14. DOXYCYCLINE [Concomitant]
     Dosage: 200 MG/D, UNK
     Dates: start: 20070601, end: 20070613

REACTIONS (2)
  - CARDIAC FAILURE [None]
  - INTESTINAL HAEMORRHAGE [None]
